FAERS Safety Report 5903992-4 (Version None)
Quarter: 2008Q3

REPORT INFORMATION
  Report Type: 
  Country: None (occurrence: None)
  Receive Date: 20080930
  Receipt Date: 20080918
  Transmission Date: 20090109
  Serious: No
  Sender: FDA-Public Use
  Company Number: DE-ELI_LILLY_AND_COMPANY-DE200809004081

PATIENT
  Sex: Male

DRUGS (2)
  1. ZYPREXA [Suspect]
     Indication: SCHIZOPHRENIA, PARANOID TYPE
     Dosage: 20 MG, DAILY (1/D)
     Route: 048
     Dates: start: 20010101
  2. LORAZEPAM [Concomitant]
     Dosage: 2 MG, DAILY (1/D)
     Route: 048

REACTIONS (1)
  - LEUKOPENIA [None]
